FAERS Safety Report 10515906 (Version 4)
Quarter: 2015Q2

REPORT INFORMATION
  Report Type: Spontaneous
  Country: US (occurrence: US)
  Receive Date: 20141014
  Receipt Date: 20150603
  Transmission Date: 20150821
  Serious: No
  Sender: FDA-Public Use
  Company Number: US-PFIZER INC-2014279889

PATIENT
  Age: 78 Year
  Sex: Female
  Weight: 75 kg

DRUGS (3)
  1. LEFLUNOMIDE. [Concomitant]
     Active Substance: LEFLUNOMIDE
     Indication: ARTHRITIS
     Dosage: 20 MG, UNK (ONE TABLET BY MOUTH DAILY)
     Route: 048
  2. PREDNISONE. [Concomitant]
     Active Substance: PREDNISONE
     Indication: ARTHRITIS
     Dosage: 5 MG, 2X/DAY (ONE TABLET BY MOUTH IN THE MORNING AND ONE TABLET AT NIGHT)
     Route: 048
  3. XELJANZ [Suspect]
     Active Substance: TOFACITINIB CITRATE
     Indication: RHEUMATOID ARTHRITIS
     Dosage: 5 MG, 2X/DAY
     Dates: start: 20140901

REACTIONS (7)
  - Nausea [Unknown]
  - Drug effect incomplete [Unknown]
  - Tongue ulceration [Unknown]
  - Mastication disorder [Unknown]
  - Dizziness postural [Unknown]
  - Abdominal pain upper [Unknown]
  - Nasopharyngitis [Unknown]
